FAERS Safety Report 10861497 (Version 1)
Quarter: 2015Q1

REPORT INFORMATION
  Report Type: Spontaneous
  Country: GB (occurrence: GB)
  Receive Date: 20150224
  Receipt Date: 20150224
  Transmission Date: 20150721
  Serious: Yes (Other)
  Sender: FDA-Public Use
  Company Number: GB-TEVA-541568ACC

PATIENT
  Age: 49 Year
  Sex: Female
  Weight: 92.07 kg

DRUGS (1)
  1. LETROZOL [Suspect]
     Active Substance: LETROZOLE
     Route: 048

REACTIONS (1)
  - Pain [Not Recovered/Not Resolved]
